FAERS Safety Report 9233901 (Version 2)
Quarter: 2013Q2

REPORT INFORMATION
  Report Type: Spontaneous
  Country: US (occurrence: None)
  Receive Date: 20121031
  Receipt Date: 20130107
  Transmission Date: 20140414
  Serious: Yes (Other)
  Sender: FDA-Public Use
  Company Number: PHEH2012US015241

PATIENT
  Age: 47 Year
  Sex: Female
  Weight: 89.3 kg

DRUGS (12)
  1. GILENYA [Suspect]
     Indication: MULTIPLE SCLEROSIS
     Dosage: 1 DF, QD, ORAL
     Route: 048
     Dates: start: 20120802
  2. TOPAMAX (TOPIRAMATE) [Suspect]
     Dosage: UNK, UKN, UNK
  3. BUPROPION (BUPROPION) [Concomitant]
  4. TRAVODONE (TRAVODONE HYDROCHLORIDE) UNKNOWN [Concomitant]
  5. VICODIN (HYDROCODONE BITARTRATE, PARACETAMOL) [Concomitant]
  6. LEXAPRO (ESCITALOPRAM OXALATE0 [Concomitant]
  7. LUBUTIN [Concomitant]
  8. SYNTHROID (LEVOTHYROXINE SODIUM) [Concomitant]
  9. TRAZODONE (TRAZODONE) [Concomitant]
  10. NORCO (HYDROCODONE BITARTRATE, PARACETAMOL) [Concomitant]
  11. BUSPAR (BUSPIRONE HYDROCHLORIDE) [Concomitant]
  12. ZANAFLEX (TIZANIDINE HYDROCHLORIDE) [Suspect]

REACTIONS (6)
  - Back pain [None]
  - Somnolence [None]
  - Fatigue [None]
  - Rhinorrhoea [None]
  - Blepharospasm [None]
  - Dizziness [None]
